FAERS Safety Report 15412511 (Version 2)
Quarter: 2019Q4

REPORT INFORMATION
  Report Type: Report from Study
  Country: DE (occurrence: DE)
  Receive Date: 20180921
  Receipt Date: 20191111
  Transmission Date: 20200122
  Serious: Yes (Congenital Anomaly)
  Sender: FDA-Public Use
  Company Number: DE-TEVA-2018-DE-956423

PATIENT

DRUGS (1)
  1. TELMISARTAN. [Suspect]
     Active Substance: TELMISARTAN
     Indication: HYPERTENSION
     Route: 064

REACTIONS (3)
  - Accidental exposure to product [Unknown]
  - Foetal exposure during pregnancy [Unknown]
  - Talipes [Unknown]
